FAERS Safety Report 6019907-7 (Version None)
Quarter: 2008Q4

REPORT INFORMATION
  Report Type: 
  Country: None (occurrence: None)
  Receive Date: 20081223
  Receipt Date: 20081210
  Transmission Date: 20090506
  Serious: Yes (Other)
  Sender: FDA-Public Use
  Company Number: 2008US002387

PATIENT
  Age: 27 Year
  Sex: Female

DRUGS (2)
  1. PROGRAF [Suspect]
     Indication: RENAL TRANSPLANT
  2. BYETTA [Suspect]
     Indication: DIABETES MELLITUS
     Dates: start: 20060401

REACTIONS (10)
  - ANAEMIA [None]
  - DIABETES MELLITUS [None]
  - DIALYSIS [None]
  - DRUG INTERACTION [None]
  - DRUG LEVEL DECREASED [None]
  - KIDNEY FIBROSIS [None]
  - KIDNEY TRANSPLANT REJECTION [None]
  - RENAL TRANSPLANT [None]
  - SURGICAL PROCEDURE REPEATED [None]
  - WEIGHT DECREASED [None]
